FAERS Safety Report 9031764 (Version 1)
Quarter: 2013Q1

REPORT INFORMATION
  Report Type: Spontaneous
  Country: CO (occurrence: CO)
  Receive Date: 20130124
  Receipt Date: 20130124
  Transmission Date: 20140127
  Serious: Yes (Hospitalization)
  Sender: FDA-Public Use
  Company Number: CO-ABBOTT-13P-036-1040232-00

PATIENT
  Age: 58 Year
  Sex: Male
  Weight: 65 kg

DRUGS (3)
  1. HUMIRA [Suspect]
     Indication: PSORIASIS
     Route: 058
     Dates: start: 20090630, end: 20121010
  2. METHOTREXATE [Concomitant]
     Indication: PRODUCT USED FOR UNKNOWN INDICATION
  3. ANTIHYPERTENSIVES [Concomitant]
     Indication: PRODUCT USED FOR UNKNOWN INDICATION

REACTIONS (3)
  - Fatigue [Recovering/Resolving]
  - Chest pain [Recovering/Resolving]
  - Dyspnoea [Recovering/Resolving]
